FAERS Safety Report 9776378 (Version 6)
Quarter: 2014Q1

REPORT INFORMATION
  Report Type: Report from Study
  Country: DE (occurrence: DE)
  Receive Date: 20131220
  Receipt Date: 20140224
  Transmission Date: 20141002
  Serious: Yes (Death, Life-Threatening, Hospitalization, Other)
  Sender: FDA-Public Use
  Company Number: DE-ABBVIE-13P-062-1182172-00

PATIENT
  Sex: Male
  Weight: 90 kg

DRUGS (6)
  1. HUMIRA [Suspect]
     Indication: PSORIASIS
     Route: 058
     Dates: start: 20130523, end: 20131217
  2. METFORMIN [Concomitant]
     Indication: DIABETES MELLITUS
  3. RAMIPRIL [Concomitant]
     Indication: HYPERTENSION
  4. OMEPRAZOLE [Concomitant]
     Indication: PRODUCT USED FOR UNKNOWN INDICATION
  5. CLIONARA [Concomitant]
     Indication: PRODUCT USED FOR UNKNOWN INDICATION
  6. METHOTREXATE [Concomitant]

REACTIONS (7)
  - Multi-organ failure [Fatal]
  - Jaundice [Unknown]
  - Bile duct stone [Unknown]
  - Liver injury [Not Recovered/Not Resolved]
  - Hepatitis alcoholic [Unknown]
  - Hepatic enzyme increased [Unknown]
  - Thrombocytopenia [Unknown]
